FAERS Safety Report 9588762 (Version 1)
Quarter: 2013Q4

REPORT INFORMATION
  Report Type: Spontaneous
  Country: US (occurrence: US)
  Receive Date: 20131003
  Receipt Date: 20131003
  Transmission Date: 20140711
  Serious: No
  Sender: FDA-Public Use
  Company Number: US-AMGEN-USASP2012065795

PATIENT
  Age: 45 Year
  Sex: Male
  Weight: 92.97 kg

DRUGS (11)
  1. ENBREL [Suspect]
     Indication: PSORIATIC ARTHROPATHY
     Dosage: 50 MG, QWK
     Route: 058
  2. CLONAZEPAM [Concomitant]
     Dosage: 1 MG, UNK
  3. LYRICA [Concomitant]
     Dosage: 100 MG, UNK
  4. CELEBREX [Concomitant]
     Dosage: 100 MG, UNK
  5. BACLOFEN [Concomitant]
     Dosage: 20 MG, UNK
  6. VICODIN [Concomitant]
     Dosage: 5-500 MG
  7. FENTANYL [Concomitant]
     Dosage: 50 MCG/HR
  8. WARFARIN [Concomitant]
     Dosage: 1 MG, UNK
  9. CRESTOR [Concomitant]
     Dosage: 5 MG, UNK
  10. SOTALOL AF                         /00371501/ [Concomitant]
     Dosage: 120 MG, UNK
  11. VITAMIN D                          /00107901/ [Concomitant]
     Dosage: 1000 UNIT, UNK

REACTIONS (1)
  - Drug ineffective [Unknown]
